FAERS Safety Report 6559580-2 (Version None)
Quarter: 2010Q1

REPORT INFORMATION
  Report Type: 
  Country: None (occurrence: None)
  Receive Date: 20100129
  Receipt Date: 20090910
  Transmission Date: 20100710
  Serious: Yes (Other)
  Sender: FDA-Public Use
  Company Number: US-ABBOTT-09P-163-0595484-00

PATIENT
  Sex: Female

DRUGS (1)
  1. HUMIRA [Suspect]
     Indication: RHEUMATOID ARTHRITIS
     Route: 058
     Dates: start: 20090319

REACTIONS (5)
  - OEDEMA [None]
  - PAIN [None]
  - PERIPHERAL NERVE OPERATION [None]
  - SWELLING FACE [None]
  - TOOTHACHE [None]
